FAERS Safety Report 7285784-X (Version None)
Quarter: 2011Q1

REPORT INFORMATION
  Report Type: 
  Country: None (occurrence: None)
  Receive Date: 20110210
  Receipt Date: 20110204
  Transmission Date: 20110831
  Serious: Yes (Life-Threatening, Hospitalization)
  Sender: FDA-Public Use
  Company Number: PHHY2011US08937

PATIENT
  Age: 46 Year
  Sex: Female

DRUGS (2)
  1. ATENOLOL [Concomitant]
     Dosage: 50 MG, UNK
  2. HYDROCHLOROTHIAZIDE [Suspect]
     Indication: HYPERTENSION
     Dosage: 25 MG
     Route: 048

REACTIONS (11)
  - VOMITING [None]
  - SHOCK [None]
  - NON-CARDIOGENIC PULMONARY OEDEMA [None]
  - DYSPNOEA [None]
  - DIZZINESS [None]
  - BODY TEMPERATURE INCREASED [None]
  - HYPOTENSION [None]
  - NAUSEA [None]
  - LETHARGY [None]
  - LUNG INFILTRATION [None]
  - RALES [None]
